FAERS Safety Report 11086276 (Version 1)
Quarter: 2015Q2

REPORT INFORMATION
  Report Type: Spontaneous
  Country: US (occurrence: US)
  Receive Date: 20150503
  Receipt Date: 20150503
  Transmission Date: 20150821
  Serious: Yes (Hospitalization, Other)
  Sender: FDA-Public Use
  Company Number: US-MYLANLABS-2015M1014766

PATIENT

DRUGS (4)
  1. DEXAMETHASONE. [Suspect]
     Active Substance: DEXAMETHASONE
     Dosage: WEEKLY
     Route: 065
  2. REVLIMID [Concomitant]
     Active Substance: LENALIDOMIDE
     Dosage: 7 DOSES DAILY
     Route: 065
  3. ZOLEDRONIC ACID [Suspect]
     Active Substance: ZOLEDRONIC ACID
     Dosage: 1 DOSE
     Route: 065
  4. VELCADE [Concomitant]
     Active Substance: BORTEZOMIB
     Dosage: 3 DOSES
     Route: 065

REACTIONS (2)
  - Hypocalcaemia [Recovering/Resolving]
  - Acute kidney injury [Recovering/Resolving]
